FAERS Safety Report 22208470 (Version 1)
Quarter: 2023Q2

REPORT INFORMATION
  Report Type: Spontaneous
  Country: ES (occurrence: ES)
  Receive Date: 20230413
  Receipt Date: 20230413
  Transmission Date: 20230722
  Serious: Yes (Other)
  Sender: FDA-Public Use
  Company Number: ES-JNJFOC-20190726003

PATIENT
  Age: 92 Year
  Sex: Female

DRUGS (1)
  1. LOPERAMIDE HYDROCHLORIDE [Suspect]
     Active Substance: LOPERAMIDE HYDROCHLORIDE
     Indication: Colitis
     Dosage: 1 PILL ONE DAILY
     Route: 048
     Dates: start: 19690701

REACTIONS (2)
  - Drug dependence [Unknown]
  - Malaise [Unknown]
